FAERS Safety Report 25715779 (Version 1)
Quarter: 2025Q3

REPORT INFORMATION
  Report Type: Report from Study
  Country: US (occurrence: US)
  Receive Date: 20250822
  Receipt Date: 20250822
  Transmission Date: 20251021
  Serious: Yes (Hospitalization)
  Sender: MERCK SHARP & DOHME LLC
  Company Number: US-009507513-2271990

PATIENT
  Sex: Male
  Weight: 93.894 kg

DRUGS (11)
  1. SOTATERCEPT [Suspect]
     Active Substance: SOTATERCEPT
     Indication: Pulmonary arterial hypertension
     Route: 058
     Dates: start: 202503
  2. SOTATERCEPT [Suspect]
     Active Substance: SOTATERCEPT
  3. SOTATERCEPT [Suspect]
     Active Substance: SOTATERCEPT
  4. SOTATERCEPT [Suspect]
     Active Substance: SOTATERCEPT
  5. SOTATERCEPT [Suspect]
     Active Substance: SOTATERCEPT
  6. SOTATERCEPT [Suspect]
     Active Substance: SOTATERCEPT
  7. SOTATERCEPT [Suspect]
     Active Substance: SOTATERCEPT
  8. SOTATERCEPT [Suspect]
     Active Substance: SOTATERCEPT
  9. REMODULIN [Suspect]
     Active Substance: TREPROSTINIL
     Indication: Pulmonary arterial hypertension
     Route: 042
  10. REMODULIN [Suspect]
     Active Substance: TREPROSTINIL
     Indication: Pulmonary arterial hypertension
     Route: 042
     Dates: start: 202206
  11. TREPROSTINIL DIOLAMINE [Suspect]
     Active Substance: TREPROSTINIL DIOLAMINE
     Route: 065

REACTIONS (10)
  - Headache [Unknown]
  - Dizziness [Unknown]
  - Pain in jaw [Unknown]
  - Injection site pain [Unknown]
  - Injection site haemorrhage [Unknown]
  - Dyspnoea exertional [Unknown]
  - Pain [Unknown]
  - Pain [Unknown]
  - Burning sensation [Unknown]
  - Drug intolerance [Not Recovered/Not Resolved]

NARRATIVE: CASE EVENT DATE: 20250101
